FAERS Safety Report 8523275-6 (Version None)
Quarter: 2012Q3

REPORT INFORMATION
  Report Type: 
  Country: None (occurrence: None)
  Receive Date: 20120706
  Receipt Date: 20120621
  Transmission Date: 20120928
  Serious: Yes (Other)
  Sender: FDA-Public Use
  Company Number: FR-1192871

PATIENT
  Age: 10 Year
  Sex: Female

DRUGS (1)
  1. SKIACOL 0.5% OPHTHALMIC SOLUTION (SKIACOL 0.5%) [Suspect]
     Indication: OPHTHALMOLOGICAL EXAMINATION
     Dosage: 1 GTT TID OU OPHTHALMIC
     Route: 047
     Dates: start: 20120620, end: 20120620

REACTIONS (2)
  - HALLUCINATION, VISUAL [None]
  - BLINDNESS TRANSIENT [None]
